FAERS Safety Report 17022134 (Version 1)
Quarter: 2019Q4

REPORT INFORMATION
  Report Type: Report from Study
  Country: HN (occurrence: HN)
  Receive Date: 20191112
  Receipt Date: 20191112
  Transmission Date: 20200122
  Serious: Yes (Other)
  Sender: FDA-Public Use
  Company Number: NVSC2019HN032948

PATIENT
  Age: 59 Year
  Sex: Male

DRUGS (3)
  1. GALVUS MET [Suspect]
     Active Substance: METFORMIN HYDROCHLORIDE\VILDAGLIPTIN
     Dosage: 1 DF, TID (850 MG METFORMIN, 50 MG VILDAGLIPTIN)
     Route: 065
     Dates: start: 20190904
  2. GALVUS MET [Suspect]
     Active Substance: METFORMIN HYDROCHLORIDE\VILDAGLIPTIN
     Dosage: 1 DF (1000 MG METFORMIN, 50 MG VILDAGLIPTIN)
     Route: 065
  3. GALVUS MET [Suspect]
     Active Substance: METFORMIN HYDROCHLORIDE\VILDAGLIPTIN
     Indication: PRODUCT USED FOR UNKNOWN INDICATION
     Dosage: 1 DF (1000 MG METFORMIN, 50 MG VILDAGLIPTIN)
     Route: 065

REACTIONS (3)
  - Blood glucose decreased [Unknown]
  - Incorrect dose administered [Unknown]
  - Diabetes mellitus inadequate control [Unknown]
